FAERS Safety Report 20082432 (Version 1)
Quarter: 2021Q4

REPORT INFORMATION
  Report Type: Spontaneous
  Country: US (occurrence: None)
  Receive Date: 20211117
  Receipt Date: 20211117
  Transmission Date: 20220303
  Serious: No
  Sender: FDA-Public Use
  Company Number: None

PATIENT
  Sex: Male

DRUGS (1)
  1. LUMAKRAS [Suspect]
     Active Substance: SOTORASIB
     Indication: Product used for unknown indication
     Dosage: OTHER QUANTITY : 8 TABLETS;?FREQUENCY : DAILY;?
     Route: 048
     Dates: start: 202107

REACTIONS (2)
  - Pneumonitis [None]
  - Cardiac failure congestive [None]

NARRATIVE: CASE EVENT DATE: 20211001
